FAERS Safety Report 9887855 (Version 2)
Quarter: 2014Q2

REPORT INFORMATION
  Report Type: Report from Study
  Country: US (occurrence: US)
  Receive Date: 20140211
  Receipt Date: 20140423
  Transmission Date: 20141212
  Serious: Yes (Death, Other)
  Sender: FDA-Public Use
  Company Number: US-SA-2013SA115979

PATIENT
  Age: 60 Year
  Sex: Female
  Weight: 115 kg

DRUGS (4)
  1. TERIFLUNOMIDE [Suspect]
     Indication: MULTIPLE SCLEROSIS RELAPSE
     Route: 048
     Dates: start: 20130819
  2. XANAX [Concomitant]
     Route: 048
  3. Z-PAK [Concomitant]
     Route: 048
  4. AMOXICILLIN [Concomitant]
     Route: 048

REACTIONS (1)
  - Non-small cell lung cancer stage IV [Fatal]
